FAERS Safety Report 7935283-4 (Version None)
Quarter: 2011Q4

REPORT INFORMATION
  Report Type: 
  Country: None (occurrence: None)
  Receive Date: 20111122
  Receipt Date: 20111111
  Transmission Date: 20120403
  Serious: Yes (Other)
  Sender: FDA-Public Use
  Company Number: CA-ELI_LILLY_AND_COMPANY-CA201111004197

PATIENT
  Age: 66 Year
  Sex: Female

DRUGS (13)
  1. LIPITOR [Concomitant]
  2. PREDNISONE TAB [Concomitant]
  3. DESLORATADINE [Concomitant]
  4. PROBIOTICA [Concomitant]
  5. LEFLUNOMIDE [Concomitant]
  6. FORTEO [Suspect]
     Indication: OSTEOPOROSIS
     Dosage: 20 UG, QD
     Route: 058
     Dates: start: 20110203
  7. DILTIAZEM HCL [Concomitant]
  8. MULTI-VITAMIN [Concomitant]
  9. ADVAIR DISKUS 100/50 [Concomitant]
  10. VITAMIN D [Concomitant]
  11. OMNARIS [Concomitant]
  12. PERINDOPRIL ERBUMINE [Concomitant]
  13. CALCIUM [Concomitant]

REACTIONS (3)
  - PAIN IN EXTREMITY [None]
  - ARTHRALGIA [None]
  - FEMUR FRACTURE [None]
